FAERS Safety Report 12939698 (Version 1)
Quarter: 2016Q4

REPORT INFORMATION
  Report Type: Spontaneous
  Country: US (occurrence: US)
  Receive Date: 20161115
  Receipt Date: 20161115
  Transmission Date: 20170207
  Serious: No
  Sender: FDA-Public Use
  Company Number: None

PATIENT

DRUGS (2)
  1. ROBAXIN [Suspect]
     Active Substance: METHOCARBAMOL
  2. RELAFEN [Suspect]
     Active Substance: NABUMETONE

REACTIONS (1)
  - Transcription medication error [None]
